FAERS Safety Report 7326429-X (Version None)
Quarter: 2011Q1

REPORT INFORMATION
  Report Type: 
  Country: None (occurrence: None)
  Receive Date: 20110302
  Receipt Date: 20110218
  Transmission Date: 20110831
  Serious: Yes (Death)
  Sender: FDA-Public Use
  Company Number: US-ELI_LILLY_AND_COMPANY-US201011007682

PATIENT
  Sex: Male
  Weight: 73.469 kg

DRUGS (1)
  1. GEMZAR [Suspect]
     Indication: BREAST CANCER METASTATIC
     Dosage: 1440 MG, UNK
     Route: 042
     Dates: start: 20100609, end: 20100720

REACTIONS (2)
  - BILIARY TRACT DISORDER [None]
  - NEOPLASM MALIGNANT [None]
